FAERS Safety Report 13738055 (Version 1)
Quarter: 2017Q3

REPORT INFORMATION
  Report Type: Spontaneous
  Country: IT (occurrence: IT)
  Receive Date: 20170710
  Receipt Date: 20170710
  Transmission Date: 20171127
  Serious: Yes (Other)
  Sender: FDA-Public Use
  Company Number: IT-PFIZER INC-2017280300

PATIENT
  Age: 64 Year
  Sex: Male
  Weight: 70 kg

DRUGS (3)
  1. LEVETIRACETAM. [Suspect]
     Active Substance: LEVETIRACETAM
     Dosage: 500 MG, QD
     Route: 040
     Dates: start: 20170620
  2. OLICLINOMEL N4-550 [Concomitant]
     Indication: PARENTERAL NUTRITION
     Dosage: 2000 ML, UNK
     Route: 042
     Dates: start: 20170618
  3. PANTORC [Suspect]
     Active Substance: PANTOPRAZOLE SODIUM
     Dosage: 40 MG, QD
     Route: 040
     Dates: start: 20170620

REACTIONS (3)
  - Vascular pain [Recovering/Resolving]
  - Flushing [Recovering/Resolving]
  - Erythema [Recovering/Resolving]

NARRATIVE: CASE EVENT DATE: 20170620
